FAERS Safety Report 9586319 (Version 1)
Quarter: 2013Q4

REPORT INFORMATION
  Report Type: Report from Study
  Country: BR (occurrence: BR)
  Receive Date: 20131003
  Receipt Date: 20131003
  Transmission Date: 20140711
  Serious: Yes (Death, Other)
  Sender: FDA-Public Use
  Company Number: PHHY2013BR109929

PATIENT
  Sex: Female

DRUGS (6)
  1. EXJADE [Suspect]
     Indication: IRON OVERLOAD
     Dosage: 500 MG, UNK
     Route: 048
  2. EXJADE [Suspect]
     Indication: MYELODYSPLASTIC SYNDROME
  3. POTASSIUM [Concomitant]
     Dosage: UNK UKN, UNK
  4. LOSARTAN [Concomitant]
     Dosage: UNK UKN, UNK
  5. AMLODIPINE BESYLATE [Concomitant]
     Dosage: UNK UKN, UNK
  6. ALLOPURINOL [Concomitant]
     Dosage: UNK UKN, UNK

REACTIONS (2)
  - Schistosomiasis liver [Fatal]
  - Myelodysplastic syndrome [Fatal]
